FAERS Safety Report 6894302-7 (Version None)
Quarter: 2010Q3

REPORT INFORMATION
  Report Type: 
  Country: None (occurrence: None)
  Receive Date: 20100802
  Receipt Date: 20100720
  Transmission Date: 20110219
  Serious: Yes (Other)
  Sender: FDA-Public Use
  Company Number: FR-KINGPHARMUSA00001-K201000909

PATIENT
  Age: 77 Year
  Sex: Female

DRUGS (13)
  1. ALTACE [Suspect]
     Indication: HYPERTENSION
     Dosage: 5 MG, BID
     Route: 048
  2. ALTACE [Suspect]
     Dosage: 5 MG, QD
  3. PROTHIPENDYL [Suspect]
     Indication: SLEEP DISORDER
     Dosage: 80 MG, QHS
  4. AMLODIPINE [Suspect]
     Indication: HYPERTENSION
     Dosage: 5 MG, QAM
  5. AMLODIPINE [Suspect]
     Dosage: 5 MG, QD
  6. HYDROCHLOROTHIAZIDE [Suspect]
     Dosage: 12.5 MG, QD
  7. BISOPROLOL [Suspect]
     Indication: HYPERTENSION
     Dosage: 5 MG, QD
  8. BAYOTENSIN AKUT [Suspect]
     Indication: HYPERTENSION
     Dosage: UNK
  9. PREGABALIN [Concomitant]
     Dosage: 150 MG, QD
  10. OLANZAPINE [Concomitant]
     Dosage: 5 MG, QD
  11. VALPROIC ACID [Concomitant]
     Dosage: 900 MG, QD
  12. CITALOPRAM [Concomitant]
     Indication: DEPRESSION
  13. DONEPEZIL HCL [Concomitant]
     Indication: COGNITIVE DISORDER

REACTIONS (5)
  - DRUG INTERACTION [None]
  - DYSARTHRIA [None]
  - FALL [None]
  - HYPOTENSION [None]
  - SYNCOPE [None]
